FAERS Safety Report 11722461 (Version 6)
Quarter: 2015Q4

REPORT INFORMATION
  Report Type: Spontaneous
  Country: JP (occurrence: JP)
  Receive Date: 20151111
  Receipt Date: 20151222
  Transmission Date: 20160304
  Serious: Yes (Hospitalization, Other)
  Sender: FDA-Public Use
  Company Number: PHJP2015JP019802

PATIENT
  Age: 64 Year
  Sex: Male
  Weight: 42.1 kg

DRUGS (7)
  1. NEORAL [Suspect]
     Active Substance: CYCLOSPORINE
     Indication: IMMUNOSUPPRESSANT DRUG THERAPY
  2. METHYLPREDNISOLONE. [Suspect]
     Active Substance: METHYLPREDNISOLONE
     Indication: RENAL TRANSPLANT
     Dosage: 4 MG, UNK
     Route: 065
  3. METHYLPREDNISOLONE. [Suspect]
     Active Substance: METHYLPREDNISOLONE
     Indication: IMMUNOSUPPRESSANT DRUG THERAPY
  4. NEORAL [Suspect]
     Active Substance: CYCLOSPORINE
     Indication: RENAL TRANSPLANT
     Dosage: 150 MG, UNK
     Route: 048
  5. RINGER^S [Concomitant]
     Indication: PRODUCT USED FOR UNKNOWN INDICATION
     Dosage: 250 ML, UNK
     Route: 013
  6. EPOPROSTENOL. [Concomitant]
     Active Substance: EPOPROSTENOL
     Indication: PRODUCT USED FOR UNKNOWN INDICATION
     Route: 013
  7. RINGER^S [Concomitant]
     Dosage: 250 ML, UNK
     Route: 065

REACTIONS (7)
  - Dyspnoea [Unknown]
  - Aortic valve incompetence [Recovered/Resolved]
  - Coronary artery occlusion [Recovered/Resolved]
  - Cardiac failure [Unknown]
  - Peripheral artery aneurysm [Unknown]
  - Arteriosclerosis [Unknown]
  - Aortic aneurysm [Unknown]
